FAERS Safety Report 5108586-9 (Version None)
Quarter: 2006Q3

REPORT INFORMATION
  Report Type: 
  Country: None (occurrence: None)
  Receive Date: 20060731
  Receipt Date: 20060510
  Transmission Date: 20061208
  Serious: No
  Sender: FDA-Public Use
  Company Number: 2006PV013581

PATIENT
  Age: 65 Year
  Sex: Male
  Weight: 117.9352 kg

DRUGS (12)
  1. BYETTA [Suspect]
     Indication: DIABETES MELLITUS NON-INSULIN-DEPENDENT
     Dosage: SEE IMAGE
     Route: 058
     Dates: start: 20060408, end: 20060507
  2. BYETTA [Suspect]
     Indication: DIABETES MELLITUS NON-INSULIN-DEPENDENT
     Dosage: SEE IMAGE
     Route: 058
     Dates: start: 20060508
  3. AMARYL [Concomitant]
  4. GLUCOPHAGE [Concomitant]
  5. CINNAMON CAPSULE [Concomitant]
  6. VANDYL CULFATE [Concomitant]
  7. ALPHA LIOPIC ACID [Concomitant]
  8. LOPRESSOR [Concomitant]
  9. VITAMIN E [Concomitant]
  10. DIGOXIN [Concomitant]
  11. ASPIRIN [Concomitant]
  12. PREDNISONE TAB [Concomitant]

REACTIONS (8)
  - ASTHENIA [None]
  - ATRIAL FIBRILLATION [None]
  - BLOOD GLUCOSE INCREASED [None]
  - ERECTILE DYSFUNCTION [None]
  - FEELING JITTERY [None]
  - INJECTION SITE BRUISING [None]
  - PALPITATIONS [None]
  - WEIGHT DECREASED [None]
